FAERS Safety Report 20076546 (Version 1)
Quarter: 2021Q4

REPORT INFORMATION
  Report Type: Spontaneous
  Country: US (occurrence: None)
  Receive Date: 20211115
  Receipt Date: 20211115
  Transmission Date: 20220304
  Serious: No
  Sender: FDA-Public Use
  Company Number: None

PATIENT

DRUGS (2)
  1. ENTYVIO [Suspect]
     Active Substance: VEDOLIZUMAB
  2. REMICADE [Suspect]
     Active Substance: INFLIXIMAB

REACTIONS (3)
  - Product preparation error [None]
  - Intercepted product administration error [None]
  - Communication disorder [None]
